FAERS Safety Report 5832343-9 (Version None)
Quarter: 2008Q3

REPORT INFORMATION
  Report Type: 
  Country: None (occurrence: None)
  Receive Date: 20080804
  Receipt Date: 20080723
  Transmission Date: 20090109
  Serious: Yes (Hospitalization)
  Sender: FDA-Public Use
  Company Number: B0531594A

PATIENT
  Age: 59 Year
  Sex: Male

DRUGS (2)
  1. MELPHALAN [Suspect]
  2. PALIFERMIN [Suspect]
     Indication: DRUG USE FOR UNKNOWN INDICATION
     Dosage: 4650MCG PER DAY
     Route: 042
     Dates: start: 20061230, end: 20070107

REACTIONS (1)
  - AXONAL NEUROPATHY [None]
